FAERS Safety Report 6616044-5 (Version None)
Quarter: 2010Q1

REPORT INFORMATION
  Report Type: 
  Country: None (occurrence: None)
  Receive Date: 20100305
  Receipt Date: 20100226
  Transmission Date: 20100710
  Serious: Yes (Hospitalization)
  Sender: FDA-Public Use
  Company Number: B0637786A

PATIENT
  Age: 89 Year
  Sex: Male

DRUGS (9)
  1. AMOXIL [Suspect]
     Indication: DRUG USE FOR UNKNOWN INDICATION
     Route: 048
     Dates: start: 20091105, end: 20091112
  2. CLARITHROMYCIN [Suspect]
     Indication: DRUG USE FOR UNKNOWN INDICATION
     Dosage: 1G PER DAY
     Route: 065
     Dates: start: 20091105, end: 20091112
  3. ESOMEPRAZOLE MAGNESIUM [Suspect]
     Indication: DRUG USE FOR UNKNOWN INDICATION
     Route: 065
     Dates: start: 20091105, end: 20091112
  4. AVAPRO [Concomitant]
     Indication: DRUG USE FOR UNKNOWN INDICATION
     Route: 065
  5. FERRO [Concomitant]
  6. LANOXIN [Concomitant]
  7. MAREVAN [Concomitant]
  8. SOMAC [Concomitant]
  9. LORATADINE [Concomitant]

REACTIONS (2)
  - RASH MACULAR [None]
  - URTICARIA [None]
